FAERS Safety Report 5902974-6 (Version None)
Quarter: 2008Q3

REPORT INFORMATION
  Report Type: 
  Country: None (occurrence: None)
  Receive Date: 20080930
  Receipt Date: 20080924
  Transmission Date: 20090109
  Serious: Yes (Other)
  Sender: FDA-Public Use
  Company Number: DE-BAYER-200827013GPV

PATIENT
  Age: 77 Year
  Sex: Female
  Weight: 108 kg

DRUGS (1)
  1. AVELOX [Suspect]
     Indication: PNEUMONIA
     Dosage: TOTAL DAILY DOSE: 400 MG  UNIT DOSE: 400 MG
     Route: 048
     Dates: start: 20080804, end: 20080811

REACTIONS (2)
  - DELIRIUM [None]
  - HALLUCINATION [None]
